FAERS Safety Report 21595630 (Version 1)
Quarter: 2022Q4

REPORT INFORMATION
  Report Type: Spontaneous
  Country: US (occurrence: US)
  Receive Date: 20221115
  Receipt Date: 20221115
  Transmission Date: 20230113
  Serious: Yes (Death, Hospitalization, Other)
  Sender: FDA-Public Use
  Company Number: US-009507513-2211USA002996

PATIENT
  Age: 78 Year
  Sex: Male

DRUGS (1)
  1. TICE BCG [Suspect]
     Active Substance: BACILLUS CALMETTE-GUERIN SUBSTRAIN TICE LIVE ANTIGEN
     Indication: Bladder transitional cell carcinoma
     Dosage: NINE MONTHS
     Route: 043
     Dates: start: 2018

REACTIONS (5)
  - Infective aneurysm [Fatal]
  - Tuberculosis [Fatal]
  - Aortic aneurysm [Fatal]
  - Cytokine storm [Unknown]
  - Aortic aneurysm rupture [Unknown]

NARRATIVE: CASE EVENT DATE: 20181201
